FAERS Safety Report 5840745-X (Version None)
Quarter: 2008Q3

REPORT INFORMATION
  Report Type: 
  Country: None (occurrence: None)
  Receive Date: 20080731
  Receipt Date: 20080508
  Transmission Date: 20090109
  Serious: No
  Sender: FDA-Public Use
  Company Number: US200805001828

PATIENT
  Age: 60 Year
  Sex: Male

DRUGS (3)
  1. BYETTA [Suspect]
     Indication: TYPE 2 DIABETES MELLITUS
     Dosage: SUBCUTANEOUS; 10 UG, 2/D, SUBCUTANEOUS
     Route: 058
     Dates: start: 20070501
  2. DRUG USED IN DIABETES [Concomitant]
  3. GLUCOPHAGE [Concomitant]

REACTIONS (5)
  - BLOOD GLUCOSE DECREASED [None]
  - BLOOD GLUCOSE INCREASED [None]
  - FEELING ABNORMAL [None]
  - SOMNOLENCE [None]
  - TREMOR [None]
